FAERS Safety Report 8810647 (Version 1)
Quarter: 2012Q4

REPORT INFORMATION
  Report Type: Spontaneous
  Country: US (occurrence: None)
  Receive Date: 20120920
  Receipt Date: 20120920
  Transmission Date: 20130627
  Serious: Yes (Hospitalization)
  Sender: FDA-Public Use
  Company Number: DSA_59712_2012

PATIENT
  Sex: Female

DRUGS (1)
  1. XENAZINE 25 MG (NOT SPECIFIED) [Suspect]
     Indication: TORTICOLLIS
     Route: 048
     Dates: start: 20101022

REACTIONS (3)
  - Neck pain [None]
  - Back disorder [None]
  - Hypoaesthesia [None]
